FAERS Safety Report 6933111-7 (Version None)
Quarter: 2010Q3

REPORT INFORMATION
  Report Type: 
  Country: None (occurrence: None)
  Receive Date: 20100819
  Receipt Date: 20100816
  Transmission Date: 20110219
  Serious: Yes (Hospitalization)
  Sender: FDA-Public Use
  Company Number: IT-BRISTOL-MYERS SQUIBB COMPANY-15242845

PATIENT
  Age: 84 Year
  Sex: Female

DRUGS (2)
  1. COUMADIN [Suspect]
     Indication: PROPHYLAXIS
     Dosage: INTERRUPTED ON 14JUL10.1 DF = 1 POSOLOGICAL UNIT
     Dates: start: 20090101
  2. LORAZEPAM [Concomitant]

REACTIONS (4)
  - FACIAL BONES FRACTURE [None]
  - HAEMATOMA [None]
  - INTERNATIONAL NORMALISED RATIO INCREASED [None]
  - SUBDURAL HAEMATOMA [None]
